FAERS Safety Report 8490648-X (Version None)
Quarter: 2012Q3

REPORT INFORMATION
  Report Type: 
  Country: None (occurrence: None)
  Receive Date: 20120705
  Receipt Date: 20120627
  Transmission Date: 20120928
  Serious: Yes (Death, Other)
  Sender: FDA-Public Use
  Company Number: JP-CELGENEUS-087-50794-11090606

PATIENT
  Sex: Male
  Weight: 68 kg

DRUGS (18)
  1. MAXIPIME [Concomitant]
     Route: 065
     Dates: start: 20110809, end: 20110815
  2. MEROPENEM [Concomitant]
     Route: 065
     Dates: start: 20110815, end: 20110819
  3. FUNGUARD [Concomitant]
     Route: 065
     Dates: start: 20110815, end: 20110819
  4. VANCOMYCIN [Concomitant]
     Route: 065
     Dates: start: 20110811, end: 20110823
  5. MEROPENEM [Concomitant]
     Route: 065
     Dates: start: 20110823, end: 20110830
  6. VIDAZA [Suspect]
     Indication: MYELODYSPLASTIC SYNDROME
     Dosage: 75 MILLIGRAM/SQ. METER
     Route: 041
     Dates: start: 20110727, end: 20110802
  7. RECOMODULIN [Concomitant]
     Dosage: 25600 IU (INTERNATIONAL UNIT)
     Route: 065
     Dates: start: 20110730, end: 20110803
  8. VIDAZA [Suspect]
     Dosage: 75 MILLIGRAM/SQ. METER
     Route: 041
     Dates: start: 20110819, end: 20110825
  9. VFEND [Concomitant]
     Route: 065
     Dates: end: 20110728
  10. FAMOTIDINE [Concomitant]
     Route: 065
     Dates: end: 20110530
  11. WYSTAL [Concomitant]
     Route: 065
     Dates: end: 20110729
  12. NONTHRON [Concomitant]
     Dosage: 1500 IU (INTERNATIONAL UNIT)
     Route: 065
     Dates: start: 20110801, end: 20110803
  13. NISSEKI POLYGLOBIN-N [Concomitant]
     Route: 065
     Dates: start: 20110816, end: 20110818
  14. NEUTROGIN [Concomitant]
     Route: 065
     Dates: start: 20110810, end: 20110818
  15. NEUTROGIN [Concomitant]
     Route: 065
     Dates: start: 20110825, end: 20110830
  16. GRANISETRON [Concomitant]
     Route: 065
     Dates: end: 20110802
  17. FUNGUARD [Concomitant]
     Route: 065
     Dates: start: 20110824, end: 20110829
  18. AMBISOME [Concomitant]
     Route: 065
     Dates: start: 20110830, end: 20110830

REACTIONS (3)
  - DISSEMINATED INTRAVASCULAR COAGULATION [None]
  - SEPSIS [None]
  - GASTROINTESTINAL HAEMORRHAGE [None]
